FAERS Safety Report 18538763 (Version 1)
Quarter: 2020Q4

REPORT INFORMATION
  Report Type: Spontaneous
  Country: US (occurrence: US)
  Receive Date: 20201124
  Receipt Date: 20201124
  Transmission Date: 20210114
  Serious: No
  Sender: FDA-Public Use
  Company Number: US-CIPLA LTD.-2020US00331

PATIENT

DRUGS (8)
  1. CALCIUM;VITAMIN B COMPLEX [Concomitant]
     Indication: SUPPLEMENTATION THERAPY
     Dosage: 2 CAPSULES, PER DAY
     Route: 065
  2. GABAPENTIN. [Suspect]
     Active Substance: GABAPENTIN
     Indication: NEUROPATHY PERIPHERAL
     Dosage: 1 CAPSULE ON SECOND DAY AND 3- 300 MG ON THIRD DAY AFTER THAT
     Route: 048
     Dates: start: 2017, end: 201712
  3. GABAPENTIN. [Suspect]
     Active Substance: GABAPENTIN
     Dosage: 1 CAPSULE OF 100 MG A DAY FOR 3 DAYS, 2 A DAY FOR 3 DAYS AND WENT TO TAKE 300 MG A DAY AFTER THAT
     Route: 048
     Dates: start: 20191101
  4. COREG [Concomitant]
     Active Substance: CARVEDILOL
     Indication: CARDIAC DISORDER
     Dosage: 12.5 MILLIGRAM, BID
     Route: 065
  5. LISINOPRIL. [Concomitant]
     Active Substance: LISINOPRIL
     Indication: CARDIAC DISORDER
     Dosage: 5 MG, PER DAY
     Route: 065
  6. GABAPENTIN. [Suspect]
     Active Substance: GABAPENTIN
     Dosage: 100 MG FOR A WEEK
     Route: 048
  7. ASPIRIN [ACETYLSALICYLIC ACID] [Concomitant]
     Active Substance: ASPIRIN
     Indication: PAIN
     Dosage: 81 MG, PER DAY
     Route: 065
  8. VITAMIN C [Concomitant]
     Active Substance: ASCORBIC ACID
     Indication: SUPPLEMENTATION THERAPY
     Dosage: 2000 MG, PER DAY
     Route: 065

REACTIONS (3)
  - Peripheral swelling [Recovered/Resolved]
  - Joint swelling [Recovered/Resolved]
  - Fatigue [Recovered/Resolved]

NARRATIVE: CASE EVENT DATE: 201911
